FAERS Safety Report 7466024-5 (Version None)
Quarter: 2011Q2

REPORT INFORMATION
  Report Type: 
  Country: None (occurrence: None)
  Receive Date: 20110509
  Receipt Date: 20100720
  Transmission Date: 20111010
  Serious: Yes (Hospitalization, Other)
  Sender: FDA-Public Use
  Company Number: US-ALEXION-A201000579

PATIENT
  Sex: Female

DRUGS (8)
  1. PROCRIT                            /00909301/ [Concomitant]
  2. COUMADIN [Concomitant]
     Dosage: 1 MG, UNK
     Route: 048
  3. FLONASE [Concomitant]
     Dosage: 50 UG, UNK
  4. SOLIRIS [Suspect]
     Indication: PAROXYSMAL NOCTURNAL HAEMOGLOBINURIA
     Dosage: 600 MG, QWK
     Route: 042
     Dates: start: 20090225
  5. AMBIEN [Concomitant]
     Dosage: 5 MG, UNK
     Route: 048
  6. PEPCID [Concomitant]
     Dosage: 20 MG, UNK
     Route: 048
  7. SOLIRIS [Suspect]
     Dosage: 900 MG, Q2WK
     Route: 042
     Dates: start: 20090325, end: 20100429
  8. CELEXA [Concomitant]
     Dosage: 20 MG, UNK
     Route: 048

REACTIONS (6)
  - HAEMOPTYSIS [None]
  - BLOOD LACTATE DEHYDROGENASE DECREASED [None]
  - PANCYTOPENIA [None]
  - APLASTIC ANAEMIA [None]
  - HAEMORRHAGE [None]
  - PLATELET COUNT DECREASED [None]
